FAERS Safety Report 9907303 (Version 2)
Quarter: 2014Q1

REPORT INFORMATION
  Report Type: Spontaneous
  Country: US (occurrence: US)
  Receive Date: 20140218
  Receipt Date: 20140318
  Transmission Date: 20141002
  Serious: No
  Sender: FDA-Public Use
  Company Number: US-009507513-1402USA008687

PATIENT
  Sex: Female

DRUGS (1)
  1. OXYTROL FOR WOMEN [Suspect]
     Indication: URINARY TRACT INFECTION
     Dosage: UNK, UNKNOWN
     Route: 062
     Dates: start: 201401

REACTIONS (2)
  - Drug effect decreased [Unknown]
  - Off label use [Unknown]
